FAERS Safety Report 4865956-1 (Version None)
Quarter: 2005Q4

REPORT INFORMATION
  Report Type: 
  Country: None (occurrence: None)
  Receive Date: 20051226
  Receipt Date: 20050422
  Transmission Date: 20060501
  Serious: Yes (Other)
  Sender: FDA-Public Use
  Company Number: US-AVENTIS-200513500US

PATIENT
  Sex: Female

DRUGS (1)
  1. LOVENOX [Suspect]
     Route: 058

REACTIONS (2)
  - BLINDNESS [None]
  - HAEMORRHAGE [None]
